FAERS Safety Report 11052238 (Version 1)
Quarter: 2015Q2

REPORT INFORMATION
  Report Type: Report from Study
  Country: US (occurrence: US)
  Receive Date: 20150421
  Receipt Date: 20150421
  Transmission Date: 20150821
  Serious: Yes (Other)
  Sender: FDA-Public Use
  Company Number: US-BAYER-2015-000862

PATIENT
  Age: 68 Year
  Sex: Male

DRUGS (2)
  1. NEXAVAR [Suspect]
     Active Substance: SORAFENIB
     Indication: HEPATOCELLULAR CARCINOMA
     Dosage: 400 MG, BID
     Route: 048
     Dates: start: 201412, end: 20150112
  2. NEXAVAR [Suspect]
     Active Substance: SORAFENIB
     Indication: HEPATOCELLULAR CARCINOMA
     Dosage: 200 MG, BID
     Route: 048
     Dates: end: 20150331

REACTIONS (8)
  - Nervous system disorder [None]
  - Headache [None]
  - Therapy cessation [None]
  - Fatigue [None]
  - Cerebral haemorrhage [None]
  - Platelet count decreased [None]
  - Pruritus [None]
  - Erythema [None]

NARRATIVE: CASE EVENT DATE: 20141220
